FAERS Safety Report 7209936-X (Version None)
Quarter: 2011Q1

REPORT INFORMATION
  Report Type: 
  Country: None (occurrence: None)
  Receive Date: 20110105
  Receipt Date: 20101227
  Transmission Date: 20110831
  Serious: No
  Sender: FDA-Public Use
  Company Number: US-BIOGENIDEC-2010BI010371

PATIENT
  Age: 40 Year
  Sex: Female

DRUGS (4)
  1. FLEXERIL [Concomitant]
     Indication: TREMOR
     Route: 048
     Dates: start: 20080101
  2. TYSABRI [Suspect]
     Route: 042
     Dates: start: 20100810, end: 20100101
  3. FLEXERIL [Concomitant]
     Indication: MOBILITY DECREASED
     Route: 048
     Dates: start: 20080101
  4. TYSABRI [Suspect]
     Indication: MULTIPLE SCLEROSIS
     Route: 042
     Dates: start: 20100205, end: 20100205

REACTIONS (6)
  - FALL [None]
  - ASTHENIA [None]
  - PAIN IN EXTREMITY [None]
  - PAIN [None]
  - HYPERSENSITIVITY [None]
  - INFUSION SITE RASH [None]
